FAERS Safety Report 14165882 (Version 2)
Quarter: 2017Q4

REPORT INFORMATION
  Report Type: Report from Study
  Country: CA (occurrence: CA)
  Receive Date: 20171107
  Receipt Date: 20171109
  Transmission Date: 20180321
  Serious: Yes (Other)
  Sender: FDA-Public Use
  Company Number: CA-JNJFOC-20171034718

PATIENT
  Age: 35 Year
  Sex: Male
  Weight: 74.15 kg

DRUGS (2)
  1. CODEINE [Concomitant]
     Active Substance: CODEINE
     Route: 048
  2. REMICADE [Suspect]
     Active Substance: INFLIXIMAB
     Indication: CROHN^S DISEASE
     Dosage: STRENGTH = 100 MG
     Route: 042
     Dates: start: 20021127

REACTIONS (5)
  - Off label use [Unknown]
  - Wound infection [Unknown]
  - Product use issue [Unknown]
  - Intestinal obstruction [Unknown]
  - Myocardial infarction [Unknown]

NARRATIVE: CASE EVENT DATE: 20021127
